FAERS Safety Report 9049478 (Version 1)
Quarter: 2013Q1

REPORT INFORMATION
  Report Type: Spontaneous
  Country: BA (occurrence: BA)
  Receive Date: 20130205
  Receipt Date: 20130205
  Transmission Date: 20140127
  Serious: Yes (Death, Hospitalization)
  Sender: FDA-Public Use
  Company Number: BA-GLAXOSMITHKLINE-B0864521A

PATIENT
  Sex: Female

DRUGS (3)
  1. REQUIP [Suspect]
     Indication: PARKINSON^S DISEASE
     Dosage: .25MG THREE TIMES PER DAY
     Route: 048
     Dates: start: 20120927
  2. MADOPAR [Concomitant]
     Indication: PARKINSON^S DISEASE
     Dosage: 125MG PER DAY
  3. STALEVO [Concomitant]
     Indication: PARKINSON^S DISEASE
     Dosage: 100MG PER DAY

REACTIONS (4)
  - Death [Fatal]
  - Tremor [Unknown]
  - Dyskinesia [Unknown]
  - Speech disorder [Unknown]
